FAERS Safety Report 19409089 (Version 1)
Quarter: 2021Q2

REPORT INFORMATION
  Report Type: Spontaneous
  Country: JP (occurrence: JP)
  Receive Date: 20210613
  Receipt Date: 20210613
  Transmission Date: 20210717
  Serious: Yes (Life-Threatening, Hospitalization, Other)
  Sender: FDA-Public Use
  Company Number: JP-AMGEN-JPNSP2021089872

PATIENT
  Age: 58 Year
  Sex: Male
  Weight: 102.5 kg

DRUGS (15)
  1. PARSABIV [Suspect]
     Active Substance: ETELCALCETIDE HYDROCHLORIDE
     Indication: HYPERPARATHYROIDISM SECONDARY
     Dosage: 5 MICORGRAM, Q56H
     Route: 010
     Dates: start: 20190907, end: 20200310
  2. PARSABIV [Suspect]
     Active Substance: ETELCALCETIDE HYDROCHLORIDE
     Dosage: 2.5 MICROGRAM, Q56H
     Route: 010
     Dates: start: 20200319, end: 20200407
  3. ROCALTROL [Concomitant]
     Active Substance: CALCITRIOL
     Dosage: 1 MICROGRAM, QWK
     Route: 065
     Dates: start: 20190413, end: 20200307
  4. ROCALTROL [Concomitant]
     Active Substance: CALCITRIOL
     Dosage: 0.5 MICROGRAM, Q84H
     Route: 065
     Dates: start: 20190411, end: 20200310
  5. FOSRENOL [Concomitant]
     Active Substance: LANTHANUM CARBONATE
     Dosage: 2250 MILLIGRAM, QD
     Route: 048
     Dates: end: 20200410
  6. FOSRENOL [Concomitant]
     Active Substance: LANTHANUM CARBONATE
     Dosage: 1250 MILLIGRAM, QD
     Route: 048
     Dates: start: 20200411
  7. ROCALTROL [Concomitant]
     Active Substance: CALCITRIOL
     Dosage: 1.0 MICROGRAM, Q84H
     Route: 065
     Dates: start: 20200312
  8. PARSABIV [Suspect]
     Active Substance: ETELCALCETIDE HYDROCHLORIDE
     Dosage: 2.5 MICROGRAM, QW
     Route: 010
     Dates: start: 20200514
  9. PARSABIV [Suspect]
     Active Substance: ETELCALCETIDE HYDROCHLORIDE
     Dosage: 5 MICROGRAM, Q84H
     Route: 010
     Dates: start: 20200514
  10. KIKLIN [Concomitant]
     Active Substance: BIXALOMER
     Dosage: 7500 MILLIGRAM, QD
     Route: 065
     Dates: start: 20190921
  11. PARSABIV [Suspect]
     Active Substance: ETELCALCETIDE HYDROCHLORIDE
     Dosage: 2.5 MICROGRAM, Q84H
     Route: 010
     Dates: start: 20200409, end: 20200512
  12. PARSABIV [Suspect]
     Active Substance: ETELCALCETIDE HYDROCHLORIDE
     Dosage: 5 MILLIGRAM, QWK
     Route: 010
     Dates: start: 20200409, end: 20200512
  13. ROCALTROL [Concomitant]
     Active Substance: CALCITRIOL
     Dosage: 0.5 MICROGRAM, QWK
     Route: 065
     Dates: start: 20200317
  14. KIKLIN [Concomitant]
     Active Substance: BIXALOMER
     Dosage: 4500 MILLIGRAM, QD
     Route: 065
     Dates: end: 20190906
  15. KIKLIN [Concomitant]
     Active Substance: BIXALOMER
     Dosage: 6000 MILLIGRAM, QD
     Route: 065
     Dates: start: 20190907, end: 20190920

REACTIONS (1)
  - Cardiac failure congestive [Recovering/Resolving]

NARRATIVE: CASE EVENT DATE: 20210402
